FAERS Safety Report 13747312 (Version 1)
Quarter: 2017Q3

REPORT INFORMATION
  Report Type: Spontaneous
  Country: DE (occurrence: DE)
  Receive Date: 20170712
  Receipt Date: 20170712
  Transmission Date: 20171127
  Serious: Yes (Other)
  Sender: FDA-Public Use
  Company Number: DE-SA-2017SA120173

PATIENT
  Sex: Male
  Weight: 87 kg

DRUGS (3)
  1. TESTOGEL [Concomitant]
     Active Substance: TESTOSTERONE
     Dosage: REGISTRATION NUMBER: 00940849?ROUTE: CUTANEOUS
     Dates: start: 201705
  2. DULCOLAX NOS [Suspect]
     Active Substance: BISACODYL OR DOCUSATE SODIUM
     Indication: CONSTIPATION
     Dosage: START DATE: 14 JUN?STOP DATE: 17 JUN?FORM: ENTERIC COATED TABLETS
     Route: 048
  3. L-THYROXIN [Concomitant]
     Active Substance: LEVOTHYROXINE SODIUM
     Dosage: REGISTRATION NUMBER: 02532741
     Route: 048

REACTIONS (1)
  - Headache [Recovered/Resolved]

NARRATIVE: CASE EVENT DATE: 20170615
